FAERS Safety Report 8806521 (Version 1)
Quarter: 2012Q4

REPORT INFORMATION
  Report Type: 
  Country: US (occurrence: US)
  Receive Date: 20120925
  Receipt Date: 20120925
  Transmission Date: 20130627
  Serious: Yes (Hospitalization)
  Sender: FDA-Public Use
  Company Number: US-BAYER-2012-099042

PATIENT
  Age: 32 Year
  Sex: Female
  Weight: 98 kg

DRUGS (8)
  1. YAZ [Suspect]
     Dosage: UNK
  2. YASMIN [Suspect]
     Indication: MENORRHAGIA
     Dosage: UNK
  3. YASMIN [Suspect]
     Indication: ENDOMETRIOSIS
  4. IBUPROFEN [Concomitant]
  5. IMODIUM [Concomitant]
     Indication: DIARRHOEA
     Dosage: 2 mg, every day
     Route: 048
  6. AMOXICILLIN [Concomitant]
     Dosage: 6.5 mg, daily
  7. DEPO PROVERA [Concomitant]
     Dosage: 150 mg, UNK
     Route: 030
  8. NICOTINE [Concomitant]

REACTIONS (1)
  - Pulmonary embolism [None]
